FAERS Safety Report 9214646 (Version 1)
Quarter: 2013Q2

REPORT INFORMATION
  Report Type: Spontaneous
  Country: FR (occurrence: None)
  Receive Date: 20130403
  Receipt Date: 20130403
  Transmission Date: 20140414
  Serious: Yes (Death, Hospitalization)
  Sender: FDA-Public Use
  Company Number: 2013-000883

PATIENT
  Age: 72 Year
  Sex: Male

DRUGS (7)
  1. CACIT D3 [Suspect]
     Dosage: 1 DOSAGE
     Route: 048
     Dates: end: 20111115
  2. ACTONEL (RISEDRONATE SODIUM) TABLET, 35MG [Suspect]
     Indication: OSTEOPOROSIS
     Dosage: ONCE A WEEK,
     Route: 048
     Dates: end: 20111115
  3. ORENCIA [Suspect]
     Indication: RHEUMATOID ARTHRITIS
     Dosage: 1 DF, ONCE MONTHLY
     Route: 042
     Dates: start: 2009, end: 201110
  4. HYDROCORTISONE [Suspect]
     Indication: RHEUMATOID ARTHRITIS
     Route: 048
     Dates: start: 201112
  5. PANTOPRAZOLE SODIUM [Suspect]
     Indication: HIATUS HERNIA
     Route: 048
  6. APROVEL [Suspect]
     Indication: HYPERTENSION
     Route: 048
     Dates: end: 20111115
  7. METFORMINE [Suspect]
     Indication: DIABETES MELLITUS
     Dosage: 1 DF,
     Route: 048

REACTIONS (9)
  - Cholestasis [None]
  - Cell death [None]
  - Jaundice [None]
  - Cardiac arrest [None]
  - Respiratory arrest [None]
  - Pulmonary embolism [None]
  - Aspartate aminotransferase increased [None]
  - Alanine aminotransferase increased [None]
  - Tachycardia [None]
